FAERS Safety Report 5614705-8 (Version None)
Quarter: 2008Q1

REPORT INFORMATION
  Report Type: 
  Country: None (occurrence: None)
  Receive Date: 20080131
  Receipt Date: 20080116
  Transmission Date: 20080703
  Serious: Yes (Death, Hospitalization, Other)
  Sender: FDA-Public Use
  Company Number: MEDI-0006207

PATIENT
  Age: 10 Month
  Sex: Male
  Weight: 8 kg

DRUGS (9)
  1. SYNAGIS [Suspect]
     Indication: ANTIVIRAL PROPHYLAXIS
     Dosage: 110 MG, INTRAMUSCULAR; INTRAMUSCULAR
     Route: 030
     Dates: start: 20061129, end: 20061129
  2. SYNAGIS [Suspect]
     Indication: ANTIVIRAL PROPHYLAXIS
     Dosage: 110 MG, INTRAMUSCULAR; INTRAMUSCULAR
     Route: 030
     Dates: start: 20061228
  3. FUROSEMIDE [Concomitant]
  4. CAPTOPRIL [Concomitant]
  5. LOPERAMIDE [Concomitant]
  6. CODEINE SUL TAB [Concomitant]
  7. ALFACALCIDOL      (ALFACALCIDOL) [Concomitant]
  8. WARFARIN SODIUM [Concomitant]
  9. CO-TRIMOXAZOLE              (CO-TRIMOXAZOLE) [Concomitant]

REACTIONS (10)
  - CONTUSION [None]
  - DRUG ERUPTION [None]
  - INTERNATIONAL NORMALISED RATIO INCREASED [None]
  - MITRAL VALVE DISEASE [None]
  - NEUTROPENIA [None]
  - PETECHIAE [None]
  - RASH PAPULAR [None]
  - SEPSIS [None]
  - SUPRAVENTRICULAR EXTRASYSTOLES [None]
  - WHITE BLOOD CELL COUNT DECREASED [None]
